FAERS Safety Report 6666224-8 (Version None)
Quarter: 2010Q2

REPORT INFORMATION
  Report Type: 
  Country: None (occurrence: None)
  Receive Date: 20100402
  Receipt Date: 20100324
  Transmission Date: 20101027
  Serious: Yes (Life-Threatening, Hospitalization)
  Sender: FDA-Public Use
  Company Number: GB-WATSON-2010-02403

PATIENT

DRUGS (4)
  1. RAMIPRIL [Suspect]
     Indication: HYPERTENSION
     Dosage: 2 1/2 MG, UNK
     Route: 048
     Dates: start: 20100208, end: 20100210
  2. CALCIUM CARBONATE [Suspect]
     Indication: HYPERTENSION
     Dosage: 1 1/4 MG, DAILY
     Route: 048
     Dates: start: 20100208, end: 20100209
  3. FERROUS SULPHATE                   /00023503/ [Suspect]
     Indication: ANAEMIA
     Dosage: 200 MG, UNK
     Route: 048
     Dates: start: 20100208, end: 20100209
  4. BENDROFLUMETHIAZIDE [Concomitant]
     Indication: HYPERTENSION
     Dosage: 2 1/2 MG, UNK
     Route: 048

REACTIONS (6)
  - ANGIOEDEMA [None]
  - FACIAL PAIN [None]
  - HYPERSENSITIVITY [None]
  - LIP SWELLING [None]
  - NASAL CONGESTION [None]
  - SWELLING FACE [None]
